FAERS Safety Report 23006367 (Version 2)
Quarter: 2024Q1

REPORT INFORMATION
  Report Type: Spontaneous
  Country: JP (occurrence: JP)
  Receive Date: 20230929
  Receipt Date: 20240119
  Transmission Date: 20240409
  Serious: Yes (Other)
  Sender: FDA-Public Use
  Company Number: JP-VALIDUS PHARMACEUTICALS LLC-JP-VDP-2023-016685

PATIENT

DRUGS (3)
  1. LASIX [Suspect]
     Active Substance: FUROSEMIDE
     Indication: Oedema
     Dosage: DAILY DOSE: 20 MG
     Route: 048
     Dates: start: 20230420
  2. LASIX [Suspect]
     Active Substance: FUROSEMIDE
     Dosage: 10 MG, QD
     Route: 048
     Dates: start: 202301, end: 2023
  3. SPIRONOLACTONE [Suspect]
     Active Substance: SPIRONOLACTONE
     Indication: Oedema
     Dosage: UNK
     Route: 048
     Dates: start: 20230323

REACTIONS (4)
  - Internal haemorrhage [Unknown]
  - Therapeutic response decreased [Unknown]
  - Platelet count decreased [Unknown]
  - Erythema [Unknown]

NARRATIVE: CASE EVENT DATE: 20230101
